FAERS Safety Report 15889750 (Version 1)
Quarter: 2019Q1

REPORT INFORMATION
  Report Type: Spontaneous
  Country: US (occurrence: US)
  Receive Date: 20190130
  Receipt Date: 20190130
  Transmission Date: 20190417
  Serious: Yes (Other)
  Sender: FDA-Public Use
  Company Number: US-EISAI MEDICAL RESEARCH-EC-2019-050836

PATIENT
  Age: 28 Year
  Sex: Male

DRUGS (7)
  1. SYMPAZAN [Suspect]
     Active Substance: CLOBAZAM
     Route: 048
     Dates: start: 20181228, end: 201901
  2. FYCOMPA [Suspect]
     Active Substance: PERAMPANEL
     Indication: PRODUCT USED FOR UNKNOWN INDICATION
     Dosage: UNKNOWN
     Route: 048
  3. SYMPAZAN [Suspect]
     Active Substance: CLOBAZAM
     Indication: PRODUCT USED FOR UNKNOWN INDICATION
     Route: 048
     Dates: start: 20181209, end: 20181216
  4. SYMPAZAN [Suspect]
     Active Substance: CLOBAZAM
     Route: 048
     Dates: start: 20190105, end: 20190107
  5. MEDICAL MARIJUANA [Suspect]
     Active Substance: CANNABIS SATIVA SUBSP. INDICA TOP
     Indication: SEIZURE PROPHYLAXIS
     Dosage: UNKNOWN
     Route: 050
  6. KEPPRA [Suspect]
     Active Substance: LEVETIRACETAM
     Indication: PRODUCT USED FOR UNKNOWN INDICATION
     Dosage: UNKNOWN
     Route: 048
  7. LAMICTAL [Concomitant]
     Active Substance: LAMOTRIGINE
     Indication: PRODUCT USED FOR UNKNOWN INDICATION
     Dosage: UNKNOWN
     Route: 065

REACTIONS (13)
  - Feeling abnormal [Unknown]
  - Euphoric mood [Unknown]
  - Pain [Unknown]
  - Peripheral swelling [Unknown]
  - Somnolence [Unknown]
  - Seizure [Unknown]
  - Crying [Unknown]
  - Vomiting [Unknown]
  - Dysarthria [Unknown]
  - Contusion [Unknown]
  - Loss of consciousness [Unknown]
  - Nausea [Unknown]
  - Cyanosis [Unknown]

NARRATIVE: CASE EVENT DATE: 20181209
